FAERS Safety Report 9683132 (Version 2)
Quarter: 2013Q4

REPORT INFORMATION
  Report Type: Spontaneous
  Country: US (occurrence: US)
  Receive Date: 20131112
  Receipt Date: 20131112
  Transmission Date: 20140711
  Serious: No
  Sender: FDA-Public Use
  Company Number: US-PFIZER INC-2013234845

PATIENT
  Age: 84 Year
  Sex: Male

DRUGS (4)
  1. FAMOTIDINE [Suspect]
     Indication: DYSPEPSIA
     Dosage: 20 MG, 2X/DAY
     Route: 048
     Dates: start: 20121219, end: 20121231
  2. FUROSEMIDE [Concomitant]
     Indication: OEDEMA
     Dosage: 40 MG, DAILY (DAILY, PRN)
  3. WARFARIN [Concomitant]
     Indication: DEEP VEIN THROMBOSIS
     Dosage: UNK, DOSE ADJUSTED PER INR
  4. WARFARIN [Concomitant]
     Indication: ATRIAL FIBRILLATION

REACTIONS (3)
  - Drug hypersensitivity [Unknown]
  - Swelling face [Recovered/Resolved]
  - Erythema [Recovered/Resolved]
